FAERS Safety Report 10416890 (Version 6)
Quarter: 2015Q1

REPORT INFORMATION
  Report Type: Spontaneous
  Country: JP (occurrence: JP)
  Receive Date: 20140828
  Receipt Date: 20150319
  Transmission Date: 20150720
  Serious: Yes (Hospitalization, Other)
  Sender: FDA-Public Use
  Company Number: PHHY2014JP106981

PATIENT
  Age: 62 Year
  Sex: Male

DRUGS (6)
  1. SYMMETREL [Suspect]
     Active Substance: AMANTADINE HYDROCHLORIDE
     Dosage: 50 MG, QD
     Route: 065
  2. ISTRADEFYLLINE [Suspect]
     Active Substance: ISTRADEFYLLINE
     Indication: PARKINSON^S DISEASE
     Route: 048
     Dates: start: 201405
  3. COMTAN [Suspect]
     Active Substance: ENTACAPONE
     Dosage: 300 MG, QD
     Route: 065
  4. MENESIT [Suspect]
     Active Substance: CARBIDOPA\LEVODOPA
     Indication: PRODUCT USED FOR UNKNOWN INDICATION
     Route: 048
  5. COMTAN [Suspect]
     Active Substance: ENTACAPONE
     Indication: PARKINSON^S DISEASE
     Dosage: 3 DF, AT NIGHT
     Route: 048
     Dates: start: 20140326, end: 20140731
  6. SYMMETREL [Suspect]
     Active Substance: AMANTADINE HYDROCHLORIDE
     Indication: PARKINSON^S DISEASE
     Dosage: 2 DF, BID, (MORNING AND EVENING)
     Route: 048
     Dates: start: 20120821

REACTIONS (11)
  - Ileus [Recovered/Resolved]
  - Muscle rigidity [Unknown]
  - Weight decreased [Recovered/Resolved]
  - Inflammation [Unknown]
  - Gastrointestinal oedema [Unknown]
  - Diarrhoea [Recovered/Resolved]
  - Condition aggravated [Unknown]
  - Enterocolitis [Recovered/Resolved]
  - Enteritis infectious [Unknown]
  - Akinesia [Unknown]
  - Decreased appetite [Unknown]

NARRATIVE: CASE EVENT DATE: 201406
